FAERS Safety Report 23159804 (Version 2)
Quarter: 2023Q4

REPORT INFORMATION
  Report Type: Report from Study
  Country: CN (occurrence: CN)
  Receive Date: 20231108
  Receipt Date: 20231116
  Transmission Date: 20240110
  Serious: Yes (Hospitalization)
  Sender: FDA-Public Use
  Company Number: CN-PFIZER INC-PV202300181863

PATIENT
  Age: 61 Year
  Sex: Male
  Weight: 58.9 kg

DRUGS (3)
  1. INLYTA [Suspect]
     Active Substance: AXITINIB
     Indication: Squamous cell carcinoma of lung
     Dosage: 5 MG, BID
     Route: 048
     Dates: start: 20231009, end: 20231024
  2. INVESTIGATIONAL PRODUCT [Suspect]
     Active Substance: INVESTIGATIONAL PRODUCT
     Indication: Squamous cell carcinoma of lung
     Dosage: 5 MG/KG, Q3W(290 MG, ONCE EVERY 3 WEEKS)
     Route: 042
     Dates: start: 20231009, end: 20231009
  3. OXYCODONE AND ACETAMINOPHEN [Concomitant]
     Active Substance: ACETAMINOPHEN\OXYCODONE HYDROCHLORIDE
     Dosage: SLICE
     Dates: start: 20231009, end: 20231025

REACTIONS (1)
  - Pain in extremity [Recovered/Resolved]

NARRATIVE: CASE EVENT DATE: 20231024
